FAERS Safety Report 12851288 (Version 1)
Quarter: 2016Q4

REPORT INFORMATION
  Report Type: Spontaneous
  Country: US (occurrence: US)
  Receive Date: 20161014
  Receipt Date: 20161014
  Transmission Date: 20170207
  Serious: Yes (Hospitalization)
  Sender: FDA-Public Use
  Company Number: None

PATIENT
  Age: 67 Year
  Sex: Male
  Weight: 121.3 kg

DRUGS (1)
  1. PENTOXIFYLLINE. [Suspect]
     Active Substance: PENTOXIFYLLINE
     Indication: INTERMITTENT CLAUDICATION
     Route: 048
     Dates: start: 20160330, end: 20160608

REACTIONS (7)
  - Hypophagia [None]
  - Hypovolaemia [None]
  - Hepatotoxicity [None]
  - Acute kidney injury [None]
  - Blood ethanol increased [None]
  - Drug-induced liver injury [None]
  - Cholestatic liver injury [None]

NARRATIVE: CASE EVENT DATE: 20160706
